FAERS Safety Report 16727854 (Version 1)
Quarter: 2019Q3

REPORT INFORMATION
  Report Type: Report from Study
  Country: None (occurrence: US)
  Receive Date: 20190822
  Receipt Date: 20190822
  Transmission Date: 20191005
  Serious: Yes (Death)
  Sender: FDA-Public Use
  Company Number: US-ABBVIE-19K-163-2895233-00

PATIENT
  Sex: Female

DRUGS (1)
  1. VENCLEXTA [Suspect]
     Active Substance: VENETOCLAX
     Indication: ACUTE MYELOID LEUKAEMIA
     Dosage: STARTING PACK: WEE1: 20MG, WEEK 2 : 50MG, WEEK 3: 100MG, WEEK 4 :200MG
     Route: 048

REACTIONS (2)
  - Off label use [Unknown]
  - Death [Fatal]
